FAERS Safety Report 21381060 (Version 1)
Quarter: 2022Q3

REPORT INFORMATION
  Report Type: Spontaneous
  Country: CH (occurrence: CH)
  Receive Date: 20220927
  Receipt Date: 20220927
  Transmission Date: 20221027
  Serious: Yes (Hospitalization, Other)
  Sender: FDA-Public Use
  Company Number: None

PATIENT
  Age: 23 Year
  Sex: Female

DRUGS (16)
  1. LORAZEPAM [Suspect]
     Active Substance: LORAZEPAM
     Dosage: 1 MG, 3X/DAY
     Route: 048
  2. TORADOL [Suspect]
     Active Substance: KETOROLAC TROMETHAMINE
     Dosage: UNK
     Dates: start: 20220815, end: 20220815
  3. TRAMADOL [Suspect]
     Active Substance: TRAMADOL
     Dosage: UNK
     Dates: start: 20220815, end: 20220815
  4. FLURAZEPAM HYDROCHLORIDE [Suspect]
     Active Substance: FLURAZEPAM HYDROCHLORIDE
     Dosage: 30 MG, 1X/DAY
     Route: 048
     Dates: end: 20220815
  5. LAMICTAL [Suspect]
     Active Substance: LAMOTRIGINE
     Indication: Borderline personality disorder
     Dosage: 350 MG, DAILY (150MG IN THE MORNING AND 200MG IN THE EVENING)
     Dates: end: 20220815
  6. LAMICTAL [Suspect]
     Active Substance: LAMOTRIGINE
     Indication: Anger
  7. LAMICTAL [Suspect]
     Active Substance: LAMOTRIGINE
     Indication: Impulsive behaviour
  8. LAMICTAL [Suspect]
     Active Substance: LAMOTRIGINE
     Indication: Mood swings
  9. QUETIAPINE [Suspect]
     Active Substance: QUETIAPINE
     Indication: Behaviour disorder
     Dosage: 300 MG, 2X/DAY (+ 50MG 2X/DAY MAX IN RESERVE ORALLY)
     Route: 048
     Dates: end: 20220815
  10. REMERON [Suspect]
     Active Substance: MIRTAZAPINE
     Indication: Depressed mood
     Dosage: 15 MG, 1X/DAY
     Route: 048
     Dates: end: 20220815
  11. TIVICAY [Concomitant]
     Active Substance: DOLUTEGRAVIR SODIUM
     Indication: High risk sexual behaviour
     Dosage: UNK
     Route: 048
  12. TRUVADA [Concomitant]
     Active Substance: EMTRICITABINE\TENOFOVIR DISOPROXIL FUMARATE
     Indication: High risk sexual behaviour
     Dosage: UNK
     Route: 048
  13. BUTYLSCOPOLAMINE BROMIDE [Concomitant]
     Active Substance: BUTYLSCOPOLAMINE BROMIDE
     Dosage: UNK UNK, AS NEEDED
     Route: 048
  14. HALDOL [Concomitant]
     Active Substance: HALOPERIDOL
     Dosage: UNK UNK, AS NEEDED
     Route: 048
  15. METOCLOPRAMIDE HYDROCHLORIDE [Concomitant]
     Active Substance: METOCLOPRAMIDE HYDROCHLORIDE
     Dosage: UNK UNK, AS NEEDED
     Route: 048
  16. DAFALGAN [Concomitant]
     Active Substance: ACETAMINOPHEN
     Dosage: UNK UNK, AS NEEDED
     Route: 048

REACTIONS (2)
  - Altered state of consciousness [Recovered/Resolved]
  - Toxicity to various agents [Recovered/Resolved]

NARRATIVE: CASE EVENT DATE: 20220815
